FAERS Safety Report 7432758-1 (Version None)
Quarter: 2011Q2

REPORT INFORMATION
  Report Type: 
  Country: None (occurrence: None)
  Receive Date: 20110422
  Receipt Date: 20110419
  Transmission Date: 20111010
  Serious: Yes (Death, Hospitalization)
  Sender: FDA-Public Use
  Company Number: A0924020A

PATIENT
  Age: 49 Year
  Sex: Female
  Weight: 79.5 kg

DRUGS (7)
  1. ALBUTEROL [Concomitant]
  2. INSULIN [Concomitant]
  3. SINGULAIR [Concomitant]
  4. PREDNISONE [Concomitant]
  5. ADVAIR HFA [Suspect]
     Indication: ASTHMA
     Dosage: 1PUFF TWICE PER DAY
     Route: 055
  6. PROVENTIL [Concomitant]
  7. VALISONE [Concomitant]

REACTIONS (3)
  - CARDIO-RESPIRATORY ARREST [None]
  - ASTHMA [None]
  - MULTI-ORGAN FAILURE [None]
